FAERS Safety Report 12921986 (Version 2)
Quarter: 2017Q2

REPORT INFORMATION
  Report Type: Spontaneous
  Country: CA (occurrence: CA)
  Receive Date: 20161108
  Receipt Date: 20170424
  Transmission Date: 20170830
  Serious: Yes (Hospitalization, Other)
  Sender: FDA-Public Use
  Company Number: CA-GILEAD-2016-0231720

PATIENT
  Age: 44 Year
  Sex: Female

DRUGS (21)
  1. ADCIRCA [Concomitant]
     Active Substance: TADALAFIL
     Indication: PRODUCT USED FOR UNKNOWN INDICATION
     Dosage: UNK
  2. LASIX [Concomitant]
     Active Substance: FUROSEMIDE
  3. VACCINIUM MACROCARPON [Concomitant]
     Active Substance: CRANBERRY
  4. VITAMIN C [Concomitant]
     Active Substance: ASCORBIC ACID
  5. POVIDONE-IODINE. [Suspect]
     Active Substance: POVIDONE-IODINE
     Indication: PRODUCT USED FOR UNKNOWN INDICATION
     Dosage: UNK
     Route: 065
  6. SULPHASALAZINE [Concomitant]
     Active Substance: SULFASALAZINE
  7. MULTIVITAMINS                      /00116001/ [Concomitant]
  8. NORMAL SALINE [Concomitant]
     Active Substance: SODIUM CHLORIDE
  9. REACTIN                            /00372302/ [Concomitant]
  10. BROMOCRIPTINE [Concomitant]
     Active Substance: BROMOCRIPTINE
  11. OMEGA 3                            /01333901/ [Concomitant]
     Active Substance: FISH OIL\TOCOPHEROL
  12. PANTOLOC                           /01263204/ [Concomitant]
     Active Substance: PANTOPRAZOLE SODIUM
  13. CALCIUM [Concomitant]
     Active Substance: CALCIUM
  14. VITAMIN B12 [Concomitant]
     Active Substance: CYANOCOBALAMIN
  15. CARIPUL [Concomitant]
     Active Substance: EPOPROSTENOL
  16. PREDNISONE. [Concomitant]
     Active Substance: PREDNISONE
  17. LEFLUNOMIDE. [Concomitant]
     Active Substance: LEFLUNOMIDE
  18. VITAMIN D                          /00107901/ [Concomitant]
     Active Substance: ERGOCALCIFEROL
  19. AMBRISENTAN [Suspect]
     Active Substance: AMBRISENTAN
     Indication: PULMONARY ARTERIAL HYPERTENSION
     Dosage: 10 MG, QD
     Route: 065
     Dates: start: 20131115
  20. LEVETIRACETAM. [Concomitant]
     Active Substance: LEVETIRACETAM
  21. ENBREL [Concomitant]
     Active Substance: ETANERCEPT

REACTIONS (4)
  - Skin reaction [Recovered/Resolved]
  - Device related infection [Not Recovered/Not Resolved]
  - Pruritus [Not Recovered/Not Resolved]
  - Device related infection [Not Recovered/Not Resolved]

NARRATIVE: CASE EVENT DATE: 20160829
